FAERS Safety Report 6278770-X (Version None)
Quarter: 2009Q3

REPORT INFORMATION
  Report Type: 
  Country: None (occurrence: None)
  Receive Date: 20090721
  Receipt Date: 20090710
  Transmission Date: 20100115
  Serious: Yes (Other)
  Sender: FDA-Public Use
  Company Number: 233243K09USA

PATIENT
  Age: 54 Year
  Sex: Female

DRUGS (5)
  1. REBIF [Suspect]
     Indication: MULTIPLE SCLEROSIS
     Dosage: 44 MCG, 3 IN 1 WEEKS. SUBCUTANEOUS
     Route: 058
     Dates: start: 20080815
  2. LOTREL [Concomitant]
  3. METOPROLOL (METOPROLOL /00376901/) [Concomitant]
  4. PLAVIX [Concomitant]
  5. NEURONTIN [Concomitant]

REACTIONS (6)
  - COLONIC POLYP [None]
  - CONSTIPATION [None]
  - FOCAL NODULAR HYPERPLASIA [None]
  - HAEMANGIOMA OF LIVER [None]
  - HEPATIC ADENOMA [None]
  - HEPATIC CYST [None]
